FAERS Safety Report 7130554 (Version 13)
Quarter: 2013Q2

REPORT INFORMATION
  Report Type: Spontaneous
  Country: US (occurrence: US)
  Receive Date: 20090925
  Receipt Date: 20130426
  Transmission Date: 20140414
  Serious: Yes (Hospitalization, Disabling)
  Sender: FDA-Public Use
  Company Number: US-JNJFOC-20090905172

PATIENT
  Age: 58 Year
  Sex: Female
  Weight: 65.32 kg

DRUGS (2)
  1. TYLENOL COLD HEAD CONGESTION NIGHTTIME COOL BURST [Suspect]
     Indication: NASOPHARYNGITIS
     Dates: start: 20090204
  2. TYLENOL COLD HEAD CONGESTION NIGHTTIME COOL BURST [Suspect]
     Indication: SINUS HEADACHE
     Dates: start: 20090204

REACTIONS (2)
  - Haemorrhagic stroke [Recovering/Resolving]
  - Haematoma [None]
